FAERS Safety Report 20806228 (Version 3)
Quarter: 2024Q2

REPORT INFORMATION
  Report Type: Spontaneous
  Country: US (occurrence: US)
  Receive Date: 20220510
  Receipt Date: 20240510
  Transmission Date: 20240716
  Serious: No
  Sender: FDA-Public Use
  Company Number: US-UCBSA-2021027580

PATIENT
  Age: 70 Year
  Sex: Female

DRUGS (1)
  1. CIMZIA [Suspect]
     Active Substance: CERTOLIZUMAB PEGOL
     Indication: Rheumatoid arthritis
     Dosage: 200 MILLIGRAM OTHER
     Route: 058
     Dates: start: 20210303, end: 20210825

REACTIONS (2)
  - Sinusitis [Unknown]
  - Pruritus [Unknown]

NARRATIVE: CASE EVENT DATE: 20210601
